FAERS Safety Report 7083188-6 (Version None)
Quarter: 2010Q4

REPORT INFORMATION
  Report Type: 
  Country: None (occurrence: None)
  Receive Date: 20101104
  Receipt Date: 20101027
  Transmission Date: 20110411
  Serious: Yes (Death)
  Sender: FDA-Public Use
  Company Number: US-PURDUE-USA-2010-0048447

PATIENT
  Weight: 51.156 kg

DRUGS (1)
  1. OXYCONTIN [Suspect]
     Indication: PAIN MANAGEMENT
     Dosage: 30 MG, BID
     Route: 048
     Dates: start: 20100902, end: 20100925

REACTIONS (1)
  - MALIGNANT NEOPLASM PROGRESSION [None]
